FAERS Safety Report 5388563-3 (Version None)
Quarter: 2007Q3

REPORT INFORMATION
  Report Type: 
  Country: None (occurrence: None)
  Receive Date: 20070716
  Receipt Date: 20070704
  Transmission Date: 20080115
  Serious: Yes (Other)
  Sender: FDA-Public Use
  Company Number: FR-PFIZER INC-2007054811

PATIENT
  Age: 17 Year
  Sex: Male

DRUGS (4)
  1. VFEND [Suspect]
     Indication: CANDIDIASIS
  2. CASPOFUNGIN ACETATE [Concomitant]
  3. DOPAMINE HCL [Concomitant]
  4. EPINEPHRINE [Concomitant]

REACTIONS (1)
  - PATHOGEN RESISTANCE [None]
